FAERS Safety Report 8026117-0 (Version None)
Quarter: 2012Q1

REPORT INFORMATION
  Report Type: 
  Country: None (occurrence: None)
  Receive Date: 20120105
  Receipt Date: 20110630
  Transmission Date: 20120608
  Serious: No
  Sender: FDA-Public Use
  Company Number: US-ABBOTT-11P-163-0836131-00

PATIENT
  Age: 63 Year
  Sex: Female
  Weight: 72.64 kg

DRUGS (1)
  1. SYNTHROID [Suspect]
     Indication: HYPOTHYROIDISM
     Dates: start: 19660101, end: 20090101

REACTIONS (5)
  - CONSTIPATION [None]
  - ALOPECIA [None]
  - DRUG EFFECT DECREASED [None]
  - FEELING ABNORMAL [None]
  - FATIGUE [None]
